FAERS Safety Report 7350180-3 (Version None)
Quarter: 2011Q1

REPORT INFORMATION
  Report Type: 
  Country: None (occurrence: None)
  Receive Date: 20110314
  Receipt Date: 20110307
  Transmission Date: 20110831
  Serious: Yes (Hospitalization)
  Sender: FDA-Public Use
  Company Number: B0702133A

PATIENT
  Sex: Male
  Weight: 85 kg

DRUGS (4)
  1. PROHEPARUM [Concomitant]
     Indication: HEPATIC FUNCTION ABNORMAL
     Route: 048
     Dates: start: 20110129
  2. LAMICTAL [Suspect]
     Indication: EPILEPSY
     Dosage: 25MG TWICE PER DAY
     Route: 048
     Dates: start: 20110130
  3. LAMICTAL [Suspect]
     Dosage: 25MG PER DAY
     Route: 048
     Dates: end: 20110201
  4. SELENICA-R [Concomitant]
     Indication: EPILEPSY
     Route: 048
     Dates: start: 20060826

REACTIONS (10)
  - SKIN EROSION [None]
  - PAIN OF SKIN [None]
  - BLISTER [None]
  - PYREXIA [None]
  - ERYTHEMA [None]
  - TOXIC EPIDERMAL NECROLYSIS [None]
  - MUCOSAL EROSION [None]
  - RASH GENERALISED [None]
  - NECROSIS [None]
  - MALAISE [None]
